FAERS Safety Report 10476661 (Version 2)
Quarter: 2014Q4

REPORT INFORMATION
  Report Type: Report from Study
  Country: US (occurrence: US)
  Receive Date: 20140925
  Receipt Date: 20141112
  Transmission Date: 20150528
  Serious: Yes (Other)
  Sender: FDA-Public Use
  Company Number: US-ALEXION PHARMACEUTICALS INC-A201305789

PATIENT

DRUGS (8)
  1. HORMONE REPLACEMENT THERAPY [Concomitant]
     Active Substance: UNSPECIFIED INGREDIENT
     Indication: PRODUCT USED FOR UNKNOWN INDICATION
     Route: 065
  2. SOLIRIS [Suspect]
     Active Substance: ECULIZUMAB
     Indication: PAROXYSMAL NOCTURNAL HAEMOGLOBINURIA
     Dosage: 900 MG, Q2W
     Route: 042
     Dates: start: 20110310
  3. CYCLOSPORINE. [Suspect]
     Active Substance: CYCLOSPORINE
     Indication: PRODUCT USED FOR UNKNOWN INDICATION
     Dosage: UNK
     Route: 065
     Dates: start: 20110526
  4. CYCLOSPORINE. [Suspect]
     Active Substance: CYCLOSPORINE
     Dosage: 150 MG, QD, 100 MG AM, 50 MG PM
     Route: 048
     Dates: start: 20140206
  5. CYCLOSPORINE. [Suspect]
     Active Substance: CYCLOSPORINE
     Dosage: 200 MG, BID
     Dates: start: 20111114
  6. CYCLOSPORINE. [Suspect]
     Active Substance: CYCLOSPORINE
     Dosage: 100 MG, BID
     Route: 065
     Dates: start: 20131106
  7. EXJADE [Suspect]
     Active Substance: DEFERASIROX
     Indication: PRODUCT USED FOR UNKNOWN INDICATION
     Dosage: 500 MG, QD
     Route: 065
     Dates: start: 20140206
  8. ARANESP [Concomitant]
     Active Substance: DARBEPOETIN ALFA
     Indication: PRODUCT USED FOR UNKNOWN INDICATION
     Dosage: 500 MG, QW
     Route: 065
     Dates: start: 20140206

REACTIONS (14)
  - Platelet transfusion [Unknown]
  - Osteopenia [Unknown]
  - Immune thrombocytopenic purpura [Recovering/Resolving]
  - Renal failure [Recovering/Resolving]
  - Serum ferritin decreased [Recovered/Resolved]
  - Platelet count decreased [Unknown]
  - Hypothyroidism [Unknown]
  - Hysterectomy [Unknown]
  - Gingival hyperplasia [Recovering/Resolving]
  - Blood creatinine increased [Unknown]
  - Haemochromatosis [Unknown]
  - Oophorectomy [Unknown]
  - Anaemia [Recovering/Resolving]
  - Iron overload [Unknown]
